FAERS Safety Report 25185656 (Version 1)
Quarter: 2025Q2

REPORT INFORMATION
  Report Type: Spontaneous
  Country: US (occurrence: US)
  Receive Date: 20250410
  Receipt Date: 20250410
  Transmission Date: 20250717
  Serious: Yes (Hospitalization)
  Sender: NEUROCRINE BIOSCIENCES
  Company Number: US-NEUROCRINE BIOSCIENCES INC.-2025NBI04055

PATIENT
  Age: 59 Year
  Sex: Male

DRUGS (1)
  1. INGREZZA SPRINKLE [Suspect]
     Active Substance: VALBENAZINE DITOSYLATE
     Indication: Tardive dyskinesia
     Route: 065

REACTIONS (5)
  - Overdose [Unknown]
  - Agitation [Unknown]
  - Gastrointestinal tube insertion [Unknown]
  - Weaning failure [Unknown]
  - Sedation [Unknown]
